FAERS Safety Report 9018316 (Version 1)
Quarter: 2013Q1

REPORT INFORMATION
  Report Type: Spontaneous
  Country: US (occurrence: None)
  Receive Date: 20130111
  Receipt Date: 20130111
  Transmission Date: 20140127
  Serious: Yes (Hospitalization)
  Sender: FDA-Public Use
  Company Number: None

PATIENT
  Age: 93 Year
  Sex: Male
  Weight: 68.1 kg

DRUGS (1)
  1. BACLOFEN [Suspect]
     Indication: MUSCLE RELAXANT THERAPY
     Dosage: 10 MG HS PO
     Route: 048
     Dates: start: 20121227, end: 20130109

REACTIONS (2)
  - Asthenia [None]
  - Dizziness [None]
